FAERS Safety Report 5226388-X (Version None)
Quarter: 2007Q1

REPORT INFORMATION
  Report Type: 
  Country: None (occurrence: None)
  Receive Date: 20070201
  Receipt Date: 20070122
  Transmission Date: 20070707
  Serious: Yes (Hospitalization)
  Sender: FDA-Public Use
  Company Number: US-BRISTOL-MYERS SQUIBB COMPANY-13651898

PATIENT
  Age: 82 Year
  Sex: Female
  Weight: 63 kg

DRUGS (13)
  1. SINEMET CR [Suspect]
  2. SINEMET [Suspect]
     Dates: start: 20060101
  3. ASPIRIN [Suspect]
  4. LYRICA [Suspect]
  5. MORPHINE [Concomitant]
  6. ATIVAN [Concomitant]
  7. HALDOL [Concomitant]
  8. CALCIUM [Concomitant]
  9. MAGNESIUM [Concomitant]
  10. CIPRO [Concomitant]
  11. FLAGYL [Concomitant]
  12. SEROQUEL [Concomitant]
  13. EXELON [Concomitant]

REACTIONS (10)
  - AGITATION [None]
  - CONFUSIONAL STATE [None]
  - EPISTAXIS [None]
  - FALL [None]
  - HIP FRACTURE [None]
  - MEDICATION ERROR [None]
  - MUSCLE RIGIDITY [None]
  - OXYGEN SATURATION DECREASED [None]
  - PYREXIA [None]
  - RENAL FAILURE [None]
